FAERS Safety Report 23065180 (Version 2)
Quarter: 2023Q4

REPORT INFORMATION
  Report Type: Spontaneous
  Country: US (occurrence: US)
  Receive Date: 20231013
  Receipt Date: 20231018
  Transmission Date: 20240109
  Serious: Yes (Life-Threatening)
  Sender: FDA-Public Use
  Company Number: US-BAUSCH-BL-2023-015147

PATIENT
  Age: 63 Year
  Sex: Female

DRUGS (1)
  1. METFORMIN [Suspect]
     Active Substance: METFORMIN HYDROCHLORIDE
     Indication: Type 2 diabetes mellitus
     Route: 065

REACTIONS (3)
  - Acute hepatic failure [Recovering/Resolving]
  - Shock [Recovering/Resolving]
  - Lactic acidosis [Recovering/Resolving]
